FAERS Safety Report 21530785 (Version 2)
Quarter: 2022Q4

REPORT INFORMATION
  Report Type: Report from Study
  Country: CO (occurrence: CO)
  Receive Date: 20221031
  Receipt Date: 20221110
  Transmission Date: 20230112
  Serious: Yes (Other)
  Sender: FDA-Public Use
  Company Number: CO-SA-SAC20221029000894

PATIENT
  Age: 33 Year
  Sex: Female
  Weight: 60 kg

DRUGS (2)
  1. DUPILUMAB [Suspect]
     Active Substance: DUPILUMAB
     Indication: Asthma
     Dosage: 400 MG, 1X
     Route: 058
     Dates: start: 20220513, end: 20220513
  2. DUPILUMAB [Suspect]
     Active Substance: DUPILUMAB
     Dosage: 200 MG, Q15D
     Route: 058
     Dates: start: 20220722, end: 2022

REACTIONS (3)
  - Asthmatic crisis [Unknown]
  - Dyspnoea [Recovering/Resolving]
  - Dry skin [Recovering/Resolving]

NARRATIVE: CASE EVENT DATE: 20220101
